FAERS Safety Report 12452495 (Version 1)
Quarter: 2016Q2

REPORT INFORMATION
  Report Type: Spontaneous
  Country: US (occurrence: US)
  Receive Date: 20160609
  Receipt Date: 20160609
  Transmission Date: 20160815
  Serious: No
  Sender: FDA-Public Use
  Company Number: US-BAYER-2016-112953

PATIENT
  Age: 90 Year
  Sex: Female
  Weight: 62.59 kg

DRUGS (1)
  1. ALEVE [Suspect]
     Active Substance: NAPROXEN SODIUM
     Indication: TOOTHACHE
     Dosage: HALF OF ONE
     Route: 048
     Dates: start: 20160607

REACTIONS (1)
  - Product use issue [None]

NARRATIVE: CASE EVENT DATE: 20160607
